FAERS Safety Report 17803033 (Version 3)
Quarter: 2020Q2

REPORT INFORMATION
  Report Type: Spontaneous
  Country: US (occurrence: US)
  Receive Date: 20200519
  Receipt Date: 20200626
  Transmission Date: 20200714
  Serious: No
  Sender: FDA-Public Use
  Company Number: US-ASTRAZENECA-2020SE64724

PATIENT
  Age: 30312 Day
  Sex: Male
  Weight: 91.2 kg

DRUGS (8)
  1. BRILINTA [Suspect]
     Active Substance: TICAGRELOR
     Indication: STENT PLACEMENT
     Route: 048
     Dates: start: 20200511, end: 20200513
  2. BRILINTA [Suspect]
     Active Substance: TICAGRELOR
     Indication: CORONARY ARTERY DISEASE
     Route: 048
     Dates: start: 20200511, end: 20200513
  3. PROPANOLOL [Concomitant]
     Active Substance: PROPRANOLOL HYDROCHLORIDE
     Indication: HYPERTENSION
     Dates: start: 2000
  4. MAGNESIUM OTC [Concomitant]
     Indication: MUSCLE SPASMS
  5. OMEPRAZOLE. [Suspect]
     Active Substance: OMEPRAZOLE
     Dosage: UNKNOWN40.0MG UNKNOWN
     Route: 048
  6. LOSARTAN. [Concomitant]
     Active Substance: LOSARTAN
     Indication: HYPERTENSION
     Dates: start: 2000
  7. BABY ASPIRIN [Concomitant]
     Active Substance: ASPIRIN
  8. ATORVASTAIN [Concomitant]
     Active Substance: ATORVASTATIN

REACTIONS (5)
  - Muscle spasms [Unknown]
  - Pollakiuria [Unknown]
  - Coronary artery disease [Recovering/Resolving]
  - Insomnia [Unknown]
  - Dyspnoea [Unknown]

NARRATIVE: CASE EVENT DATE: 20200511
